FAERS Safety Report 16127577 (Version 1)
Quarter: 2019Q1

REPORT INFORMATION
  Report Type: Spontaneous
  Country: US (occurrence: US)
  Receive Date: 20190328
  Receipt Date: 20190328
  Transmission Date: 20190418
  Serious: No
  Sender: FDA-Public Use
  Company Number: US-PFIZER INC-2019130798

PATIENT
  Age: 56 Year
  Sex: Male

DRUGS (1)
  1. LYRICA CR [Suspect]
     Active Substance: PREGABALIN
     Dosage: 165 MG, DAILY (TAKE ONE BY MOUTH DAILY)
     Route: 048

REACTIONS (1)
  - Pain [Unknown]
